FAERS Safety Report 9851658 (Version 3)
Quarter: 2014Q1

REPORT INFORMATION
  Report Type: Report from Study
  Country: US (occurrence: US)
  Receive Date: 20140129
  Receipt Date: 20140213
  Transmission Date: 20141002
  Serious: Yes (Life-Threatening, Hospitalization)
  Sender: FDA-Public Use
  Company Number: US-ROCHE-1340447

PATIENT
  Sex: Male

DRUGS (7)
  1. LUCENTIS [Suspect]
     Indication: RETINAL VEIN OCCLUSION
     Dosage: EVERY 4 -6 WEEKS
     Route: 065
     Dates: start: 20130927
  2. LUCENTIS [Suspect]
     Dosage: EVERY 4 -6 WEEKS
     Route: 065
     Dates: start: 20131211
  3. LUCENTIS [Suspect]
     Dosage: EVERY 4 -6 WEEKS
     Route: 065
     Dates: start: 20140102
  4. AVASTIN [Suspect]
     Indication: PRODUCT USED FOR UNKNOWN INDICATION
     Dosage: EVERY 4 -6 WEEKS, LAST DOSE WAS ON
     Route: 065
     Dates: start: 20130319
  5. AVASTIN [Suspect]
     Dosage: EVERY 4 -6 WEEKS, LAST DOSE WAS ON
     Route: 065
     Dates: start: 20130514
  6. AVASTIN [Suspect]
     Dosage: EVERY 4 -6 WEEKS, LAST DOSE WAS ON
     Route: 065
     Dates: start: 20130625
  7. AVASTIN [Suspect]
     Dosage: EVERY 4 -6 WEEKS, LAST DOSE WAS ON
     Route: 065
     Dates: start: 20130725

REACTIONS (1)
  - Aortic aneurysm [Unknown]
